FAERS Safety Report 26093724 (Version 3)
Quarter: 2025Q4

REPORT INFORMATION
  Report Type: Report from Study
  Country: US (occurrence: US)
  Receive Date: 20251126
  Receipt Date: 20251230
  Transmission Date: 20260117
  Serious: Yes (Hospitalization, Other)
  Sender: NOVARTIS
  Company Number: US-002147023-NVSC2025US180552

PATIENT
  Age: 83 Year
  Sex: Female
  Weight: 81 kg

DRUGS (3)
  1. COSENTYX [Suspect]
     Active Substance: SECUKINUMAB
     Indication: Psoriasis
     Dosage: 300 MG, Q4W
     Route: 058
     Dates: start: 20250604
  2. COSENTYX [Suspect]
     Active Substance: SECUKINUMAB
     Dosage: UNK
     Route: 065
  3. SGN-EGFRD2 [Suspect]
     Active Substance: SGN-EGFRD2
     Indication: Non-small cell lung cancer
     Dosage: 10000 UG, Q2W (CYCLIC)
     Route: 042
     Dates: start: 20250325

REACTIONS (10)
  - Sepsis [Recovered/Resolved]
  - Lactic acidosis [Unknown]
  - Hypophosphataemia [Unknown]
  - Nausea [Unknown]
  - Abdominal pain [Unknown]
  - Diarrhoea [Unknown]
  - Vomiting [Unknown]
  - Atrial fibrillation [Unknown]
  - Systemic inflammatory response syndrome [Unknown]
  - Acute kidney injury [Unknown]

NARRATIVE: CASE EVENT DATE: 20250819
